FAERS Safety Report 19225141 (Version 1)
Quarter: 2021Q2

REPORT INFORMATION
  Report Type: Spontaneous
  Country: ES (occurrence: ES)
  Receive Date: 20210506
  Receipt Date: 20210506
  Transmission Date: 20210717
  Serious: Yes (Other)
  Sender: FDA-Public Use
  Company Number: ES-PFIZER INC-2021461095

PATIENT
  Age: 75 Year
  Sex: Female

DRUGS (7)
  1. PARACETAMOL [Suspect]
     Active Substance: ACETAMINOPHEN
  2. GABAPENTIN. [Suspect]
     Active Substance: GABAPENTIN
  3. HYDROCHLOROTHIAZIDE, IRBESARTAN HYDROCHLORIDE [Suspect]
     Active Substance: HYDROCHLOROTHIAZIDE\IRBESARTAN
  4. LORAZEPAM. [Suspect]
     Active Substance: LORAZEPAM
  5. BUPRENORPHINE. [Suspect]
     Active Substance: BUPRENORPHINE
     Dosage: UNK
  6. SIMVASTATIN. [Suspect]
     Active Substance: SIMVASTATIN
  7. OMEPRAZOLE. [Suspect]
     Active Substance: OMEPRAZOLE

REACTIONS (1)
  - Vulvar basal cell carcinoma [Unknown]
